FAERS Safety Report 25221154 (Version 1)
Quarter: 2025Q2

REPORT INFORMATION
  Report Type: Spontaneous
  Country: US (occurrence: None)
  Receive Date: 20250421
  Receipt Date: 20250421
  Transmission Date: 20250717
  Serious: Yes (Disabling)
  Sender: FDA-CTU
  Company Number: None

PATIENT
  Age: 23 Year
  Sex: Male
  Weight: 103.5 kg

DRUGS (2)
  1. CANNABIDIOL\CANNABIGEROL\HERBALS [Suspect]
     Active Substance: CANNABIDIOL\CANNABIGEROL\HERBALS
     Indication: Insomnia
     Dates: start: 20250410, end: 20250413
  2. CANNABIDIOL\CANNABIGEROL\HERBALS [Suspect]
     Active Substance: CANNABIDIOL\CANNABIGEROL\HERBALS
     Indication: Anxiety

REACTIONS (14)
  - Extra dose administered [None]
  - Poisoning [None]
  - Disorientation [None]
  - Mental impairment [None]
  - Drug screen positive [None]
  - Cognitive disorder [None]
  - Physical product label issue [None]
  - Product barcode issue [None]
  - Product distribution issue [None]
  - Panic attack [None]
  - Blood pressure increased [None]
  - Product contamination [None]
  - Product advertising issue [None]
  - Victim of crime [None]

NARRATIVE: CASE EVENT DATE: 20250413
